FAERS Safety Report 14740418 (Version 1)
Quarter: 2018Q2

REPORT INFORMATION
  Report Type: Spontaneous
  Country: GB (occurrence: GB)
  Receive Date: 20180410
  Receipt Date: 20180410
  Transmission Date: 20180711
  Serious: Yes (Other)
  Sender: FDA-Public Use
  Company Number: GB-MICRO LABS LIMITED-BB2018-00492

PATIENT
  Age: 80 Year
  Sex: Male

DRUGS (4)
  1. AMOXICILLIN. [Concomitant]
     Active Substance: AMOXICILLIN
     Indication: INFECTION
     Route: 048
     Dates: start: 20170810, end: 20170817
  2. SIMVASTATIN 20 MG FILM COATED TABLETS [Suspect]
     Active Substance: SIMVASTATIN
     Indication: HYPERCHOLESTEROLAEMIA
     Route: 048
     Dates: start: 20180206, end: 20180206
  3. EFUDIX [Concomitant]
     Active Substance: FLUOROURACIL
     Indication: SKIN LESION
     Dosage: AT NIGHT FOR 3 WEEKS
     Route: 061
     Dates: start: 20171010, end: 20171031
  4. AMLODIPINE [Concomitant]
     Active Substance: AMLODIPINE BESYLATE
     Indication: HYPERTENSION
     Route: 048

REACTIONS (3)
  - Abdominal discomfort [Recovering/Resolving]
  - Muscle spasms [Recovering/Resolving]
  - Product substitution issue [Unknown]

NARRATIVE: CASE EVENT DATE: 20180206
